FAERS Safety Report 25091415 (Version 2)
Quarter: 2025Q4

REPORT INFORMATION
  Report Type: Spontaneous
  Country: US (occurrence: US)
  Receive Date: 20250318
  Receipt Date: 20251006
  Transmission Date: 20260118
  Serious: No
  Sender: SANOFI AVENTIS
  Company Number: US-SA-2025SA076744

PATIENT
  Age: 18 Year
  Sex: Female

DRUGS (1)
  1. DUPIXENT [Suspect]
     Active Substance: DUPILUMAB
     Indication: Eczema
     Dosage: 300 MG, QOW
     Route: 058
     Dates: start: 20250311

REACTIONS (4)
  - Injection site inflammation [Unknown]
  - Injection site erythema [Unknown]
  - Injection site warmth [Unknown]
  - Eczema [Unknown]

NARRATIVE: CASE EVENT DATE: 20250311
